FAERS Safety Report 6928291-3 (Version None)
Quarter: 2010Q3

REPORT INFORMATION
  Report Type: 
  Country: None (occurrence: None)
  Receive Date: 20100817
  Receipt Date: 20100804
  Transmission Date: 20110219
  Serious: Yes (Hospitalization)
  Sender: FDA-Public Use
  Company Number: JP-ROCHE-720418

PATIENT
  Sex: Male

DRUGS (23)
  1. TOCILIZUMAB [Suspect]
     Indication: RHEUMATOID ARTHRITIS
     Route: 041
     Dates: start: 20080707, end: 20080707
  2. TOCILIZUMAB [Suspect]
     Route: 041
     Dates: start: 20080804, end: 20080804
  3. TOCILIZUMAB [Suspect]
     Route: 041
     Dates: start: 20080902, end: 20080902
  4. TOCILIZUMAB [Suspect]
     Route: 041
     Dates: start: 20081007, end: 20081007
  5. TOCILIZUMAB [Suspect]
     Route: 041
     Dates: start: 20081104, end: 20081104
  6. TOCILIZUMAB [Suspect]
     Route: 041
     Dates: start: 20081204, end: 20081204
  7. TOCILIZUMAB [Suspect]
     Route: 041
     Dates: start: 20090106, end: 20090106
  8. TOCILIZUMAB [Suspect]
     Route: 041
     Dates: start: 20090203, end: 20090203
  9. TOCILIZUMAB [Suspect]
     Route: 041
     Dates: start: 20090303, end: 20090303
  10. TOCILIZUMAB [Suspect]
     Route: 041
     Dates: start: 20090402, end: 20090402
  11. TOCILIZUMAB [Suspect]
     Route: 041
     Dates: start: 20090430, end: 20090430
  12. TOCILIZUMAB [Suspect]
     Route: 041
     Dates: start: 20090528, end: 20090528
  13. TOCILIZUMAB [Suspect]
     Route: 041
     Dates: start: 20090625
  14. VOLTAREN [Suspect]
     Indication: RHEUMATOID ARTHRITIS
     Dosage: FORM: PERORAL AGENT.
     Route: 048
     Dates: start: 20080804
  15. VOLTAREN [Suspect]
     Route: 054
     Dates: end: 20080820
  16. METHOTREXATE [Concomitant]
     Route: 048
  17. PROGRAF [Concomitant]
     Route: 048
     Dates: end: 20080708
  18. PREDNISOLONE [Concomitant]
     Dosage: DRUG NAME: PREDOHAN.
     Route: 048
  19. LORAZEPAM [Concomitant]
     Route: 048
  20. LENDORMIN [Concomitant]
     Route: 048
  21. TAKEPRON [Concomitant]
     Route: 048
  22. FOLIAMIN [Concomitant]
     Route: 048
     Dates: start: 20080902
  23. CRESTOR [Concomitant]
     Route: 048
     Dates: start: 20090902

REACTIONS (4)
  - COAGULATION FACTOR DEFICIENCY [None]
  - HEPATIC FUNCTION ABNORMAL [None]
  - HYPERLIPIDAEMIA [None]
  - UPPER RESPIRATORY TRACT INFLAMMATION [None]
